FAERS Safety Report 10185830 (Version 1)
Quarter: 2014Q2

REPORT INFORMATION
  Report Type: Spontaneous
  Country: FR (occurrence: FR)
  Receive Date: 20140521
  Receipt Date: 20140521
  Transmission Date: 20141212
  Serious: Yes (Life-Threatening, Hospitalization)
  Sender: FDA-Public Use
  Company Number: FR-ELI_LILLY_AND_COMPANY-FR201405004854

PATIENT
  Sex: Male

DRUGS (1)
  1. GEMZAR [Suspect]
     Indication: PANCREATIC CARCINOMA
     Dosage: 850 MG/M2, CYCLICAL
     Route: 042
     Dates: start: 20130710, end: 20140205

REACTIONS (2)
  - Renal failure acute [Recovered/Resolved with Sequelae]
  - Diarrhoea [Unknown]
